FAERS Safety Report 12900017 (Version 1)
Quarter: 2016Q4

REPORT INFORMATION
  Report Type: Spontaneous
  Country: US (occurrence: US)
  Receive Date: 20161101
  Receipt Date: 20161101
  Transmission Date: 20170207
  Serious: Yes (Hospitalization)
  Sender: FDA-Public Use
  Company Number: US-SMITH AND NEPHEW, INC-2016SMT00893

PATIENT
  Age: 72 Year
  Sex: Male
  Weight: 104.31 kg

DRUGS (1)
  1. REGRANEX [Suspect]
     Active Substance: BECAPLERMIN
     Indication: DIABETIC ULCER
     Dosage: UNK, EVERY 72 HOURS AND AS NEEDED
     Route: 061
     Dates: start: 201609, end: 20161007

REACTIONS (6)
  - Osteomyelitis [Recovering/Resolving]
  - Incorrect drug administration duration [Recovered/Resolved]
  - Gait disturbance [Recovered/Resolved]
  - Application site pain [Not Recovered/Not Resolved]
  - Chest pain [Recovered/Resolved]
  - Inappropriate schedule of drug administration [Recovered/Resolved]

NARRATIVE: CASE EVENT DATE: 201609
